FAERS Safety Report 7235495-1 (Version None)
Quarter: 2011Q1

REPORT INFORMATION
  Report Type: 
  Country: None (occurrence: None)
  Receive Date: 20110120
  Receipt Date: 20110114
  Transmission Date: 20110831
  Serious: Yes (Hospitalization, Other)
  Sender: FDA-Public Use
  Company Number: US-AMGEN-QUU402092

PATIENT

DRUGS (2)
  1. MORPHINE [Concomitant]
  2. ENBREL [Suspect]
     Indication: RHEUMATOID ARTHRITIS
     Dosage: 50 MG, QWK
     Route: 058
     Dates: start: 19990920, end: 20090701

REACTIONS (13)
  - LUMBAR VERTEBRAL FRACTURE [None]
  - MEDICAL DEVICE REMOVAL [None]
  - THROMBOSIS [None]
  - DIABETES MELLITUS INADEQUATE CONTROL [None]
  - RHEUMATOID ARTHRITIS [None]
  - RENAL FAILURE [None]
  - OVERDOSE [None]
  - PNEUMONIA [None]
  - FALL [None]
  - VIITH NERVE PARALYSIS [None]
  - SEPSIS [None]
  - URINARY TRACT INFECTION [None]
  - FEMUR FRACTURE [None]
